FAERS Safety Report 6956883-4 (Version None)
Quarter: 2010Q3

REPORT INFORMATION
  Report Type: 
  Country: None (occurrence: None)
  Receive Date: 20100826
  Receipt Date: 20100823
  Transmission Date: 20110219
  Serious: Yes (Life-Threatening, Hospitalization)
  Sender: FDA-Public Use
  Company Number: TIR-00207

PATIENT
  Age: 2 Year
  Sex: Female
  Weight: 13 kg

DRUGS (3)
  1. LEVOTHYROXINE SODIUM [Suspect]
     Dosage: ORAL, 40 TABLETS
     Route: 048
  2. PROPRANOLOL [Suspect]
     Dosage: ORAL, 0.8 MG/KG, EVERY 6 HOURS
     Route: 048
  3. IBUPROFEN [Suspect]
     Dosage: 10 MG/KG, ORAL
     Route: 048

REACTIONS (11)
  - ACCIDENTAL DRUG INTAKE BY CHILD [None]
  - ACCIDENTAL OVERDOSE [None]
  - ADRENAL INSUFFICIENCY [None]
  - DIARRHOEA [None]
  - HYPERTENSION [None]
  - HYPERTHERMIA [None]
  - IRRITABILITY [None]
  - POISONING [None]
  - PSYCHOMOTOR HYPERACTIVITY [None]
  - THYROTOXIC CRISIS [None]
  - VOMITING [None]
